FAERS Safety Report 7000691-5 (Version None)
Quarter: 2010Q3

REPORT INFORMATION
  Report Type: 
  Country: None (occurrence: None)
  Receive Date: 20100920
  Receipt Date: 20100517
  Transmission Date: 20110219
  Serious: Yes (Hospitalization)
  Sender: FDA-Public Use
  Company Number: US-ASTRAZENECA-2009SE15535

PATIENT
  Age: 13075 Day
  Sex: Male
  Weight: 192.8 kg

DRUGS (4)
  1. SEROQUEL [Suspect]
     Route: 048
     Dates: start: 20010226
  2. TOPAMAX [Concomitant]
     Dates: start: 20010226
  3. RISPERDAL [Concomitant]
     Dosage: 1 MG TO 3 MG
     Dates: start: 20010226
  4. LISINOPRIL [Concomitant]
     Route: 048
     Dates: start: 20080223

REACTIONS (2)
  - DIABETES MELLITUS [None]
  - DIABETIC KETOACIDOSIS [None]
